FAERS Safety Report 24000706 (Version 1)
Quarter: 2024Q2

REPORT INFORMATION
  Report Type: Spontaneous
  Country: US (occurrence: US)
  Receive Date: 20240621
  Receipt Date: 20240621
  Transmission Date: 20240717
  Serious: No
  Sender: FDA-Public Use
  Company Number: US-PFIZER INC-202400197894

PATIENT
  Age: 57 Year
  Sex: Female

DRUGS (3)
  1. PAXLOVID [Suspect]
     Active Substance: NIRMATRELVIR\RITONAVIR
     Indication: COVID-19 treatment
     Dosage: UNK
     Dates: start: 20240530, end: 20240604
  2. TYLENOL [Concomitant]
     Active Substance: ACETAMINOPHEN
     Dates: start: 20240528, end: 20240602
  3. IBUPROFEN [Concomitant]
     Active Substance: IBUPROFEN
     Dates: start: 20240528, end: 20240530

REACTIONS (2)
  - COVID-19 [Recovered/Resolved]
  - Disease recurrence [Recovered/Resolved]

NARRATIVE: CASE EVENT DATE: 20240610
